FAERS Safety Report 4479534-X (Version None)
Quarter: 2004Q4

REPORT INFORMATION
  Report Type: 
  Country: None (occurrence: None)
  Receive Date: 20041015
  Receipt Date: 20041006
  Transmission Date: 20050328
  Serious: Yes (Other)
  Sender: FDA-Public Use
  Company Number: 2004237751US

PATIENT
  Age: 56 Year
  Sex: Female

DRUGS (2)
  1. DAYPRO [Suspect]
     Indication: OSTEOARTHRITIS
     Dosage: SEE IMAGE
     Route: 048
     Dates: start: 19900101, end: 19940101
  2. DAYPRO [Suspect]
     Indication: OSTEOARTHRITIS
     Dosage: SEE IMAGE
     Route: 048
     Dates: end: 19990101

REACTIONS (8)
  - BARRETT'S OESOPHAGUS [None]
  - HIATUS HERNIA [None]
  - NAUSEA [None]
  - OESOPHAGEAL ULCER [None]
  - OESOPHAGEAL VARICES HAEMORRHAGE [None]
  - PANCREATITIS [None]
  - VOMITING [None]
  - WEIGHT DECREASED [None]
